FAERS Safety Report 11031101 (Version 1)
Quarter: 2015Q2

REPORT INFORMATION
  Report Type: Spontaneous
  Country: US (occurrence: US)
  Receive Date: 20150415
  Receipt Date: 20150415
  Transmission Date: 20150821
  Serious: No
  Sender: FDA-Public Use
  Company Number: US-ASTRAZENECA-2014SE69072

PATIENT
  Age: 64 Year

DRUGS (4)
  1. PRILOSEC OTC [Suspect]
     Active Substance: OMEPRAZOLE MAGNESIUM
     Dosage: (1 PILL IN THE EVENING,) TRIED IT AGAIN NOT THE NEXT DAY BUT THE FOLLOWING DAY
     Route: 048
     Dates: start: 20140827, end: 20140827
  2. PRILOSEC OTC [Suspect]
     Active Substance: OMEPRAZOLE MAGNESIUM
     Dosage: 1 PILL IN THE EVENING, ( TRIED IT AGAIN NOT THE NEXT DAY BUT THE FOLLOWING DAY)
     Route: 048
     Dates: start: 20140825, end: 20140825
  3. ATORVASTATIN [Concomitant]
     Active Substance: ATORVASTATIN
     Dosage: UNKNOWN
  4. FENTANYL. [Concomitant]
     Active Substance: FENTANYL
     Dosage: UNKNOWN

REACTIONS (4)
  - Dizziness [Recovered/Resolved]
  - Inappropriate schedule of drug administration [Unknown]
  - Nausea [Recovered/Resolved]
  - Vomiting [Recovered/Resolved]

NARRATIVE: CASE EVENT DATE: 20140825
